FAERS Safety Report 12073964 (Version 1)
Quarter: 2016Q1

REPORT INFORMATION
  Report Type: Not Available
  Country: None (occurrence: US)
  Receive Date: 20160212
  Receipt Date: 20160212
  Transmission Date: 20160608
  Serious: No
  Sender: FDA-Public Use
  Company Number: US-AKORN-12082

PATIENT
  Age: 74 Year
  Sex: Female

DRUGS (1)
  1. ZIOPTAN [Suspect]
     Active Substance: TAFLUPROST

REACTIONS (3)
  - Photophobia [None]
  - Eye pain [None]
  - Pruritus [None]
